APPROVED DRUG PRODUCT: THIOTEPA
Active Ingredient: THIOTEPA
Strength: 15MG/VIAL
Dosage Form/Route: INJECTABLE;INJECTION
Application: A210337 | Product #001 | TE Code: AP
Applicant: DR REDDYS LABORATORIES LTD
Approved: May 4, 2018 | RLD: No | RS: No | Type: RX